FAERS Safety Report 9193937 (Version 1)
Quarter: 2013Q1

REPORT INFORMATION
  Report Type: Spontaneous
  Country: US (occurrence: US)
  Receive Date: 20130327
  Receipt Date: 20130327
  Transmission Date: 20140127
  Serious: Yes (Other)
  Sender: FDA-Public Use
  Company Number: US-TEVA-394978USA

PATIENT
  Age: 50 Year
  Sex: Female

DRUGS (5)
  1. ACTIQ [Suspect]
  2. TAPENTADOL [Suspect]
  3. MORPHINE [Suspect]
  4. OTHER TYPES OF ANTIDEPRESSANT [Suspect]
  5. OTHER TYPES OF SEDATIVE/HYPNOTIC/ANTI-ANXIETY OR ANTI-PSYCHOTIC [Suspect]

REACTIONS (1)
  - Suicide attempt [Unknown]
